FAERS Safety Report 24101174 (Version 1)
Quarter: 2024Q3

REPORT INFORMATION
  Report Type: Spontaneous
  Country: US (occurrence: US)
  Receive Date: 20240717
  Receipt Date: 20240717
  Transmission Date: 20241017
  Serious: No
  Sender: ABBVIE
  Company Number: US-ABBVIE-5841130

PATIENT
  Sex: Female

DRUGS (2)
  1. HUMIRA [Suspect]
     Active Substance: ADALIMUMAB
     Indication: Product used for unknown indication
     Dosage: FORM STRENGTH - 40 MG/ML
     Route: 058
     Dates: end: 20240523
  2. HUMIRA [Suspect]
     Active Substance: ADALIMUMAB
     Dosage: FORM STRENGTH - 40 MG/ML     FIRST ADMIN DATE 2024
     Route: 058

REACTIONS (2)
  - Diarrhoea [Unknown]
  - Device issue [Unknown]

NARRATIVE: CASE EVENT DATE: 20240101
